FAERS Safety Report 9202024 (Version 2)
Quarter: 2013Q3

REPORT INFORMATION
  Report Type: Report from Study
  Country: US (occurrence: US)
  Receive Date: 20130401
  Receipt Date: 20130701
  Transmission Date: 20140515
  Serious: Yes (Hospitalization)
  Sender: FDA-Public Use
  Company Number: US-ROCHE-1205448

PATIENT
  Age: 51 Year
  Sex: Male
  Weight: 131 kg

DRUGS (10)
  1. PEG-INTERFERON ALFA 2A [Suspect]
     Indication: HEPATITIS C
     Route: 065
     Dates: start: 20121114, end: 20130307
  2. RIBAVIRIN [Suspect]
     Indication: HEPATITIS C
     Route: 048
     Dates: start: 20121114, end: 20130307
  3. BLINDED TMC435 [Suspect]
     Indication: HEPATITIS C
     Route: 048
     Dates: start: 20121114, end: 20130205
  4. BLINDED TELAPREVIR [Suspect]
     Indication: HEPATITIS C
     Route: 048
     Dates: start: 20121114, end: 20130205
  5. ATENOLOL/CHLORTHALIDONE [Concomitant]
     Indication: HYPERTENSION
     Dosage: 50 MG-25 MG
     Route: 048
     Dates: start: 20130317
  6. ATROPINE W/DIPHENOXYLATE [Concomitant]
     Indication: DIARRHOEA
     Dosage: 0.025 MG-2.5 MG
     Route: 048
     Dates: start: 20130317
  7. CLARITIN [Concomitant]
     Route: 065
     Dates: start: 20130317
  8. OMEPRAZOLE [Concomitant]
     Indication: GASTRITIS
     Route: 048
     Dates: start: 20130317
  9. PAROXETINE [Concomitant]
     Indication: DEPRESSION
     Route: 048
     Dates: start: 20130317
  10. RANITIDINE [Concomitant]
     Indication: DYSPEPSIA
     Dosage: ONCE A DAY (AT BEDTIME)
     Route: 048
     Dates: start: 20130317

REACTIONS (2)
  - Pulmonary embolism [Recovered/Resolved]
  - Deep vein thrombosis [Recovered/Resolved]
